FAERS Safety Report 25048841 (Version 3)
Quarter: 2025Q4

REPORT INFORMATION
  Report Type: Report from Study
  Country: US (occurrence: US)
  Receive Date: 20250307
  Receipt Date: 20251229
  Transmission Date: 20260118
  Serious: Yes (Hospitalization, Other)
  Sender: BIOCODEX
  Company Number: US-BIOCODEX2-2024001872

PATIENT
  Age: 2 Year
  Sex: Male
  Weight: 15.5 kg

DRUGS (16)
  1. DIACOMIT [Suspect]
     Active Substance: STIRIPENTOL
     Indication: Severe myoclonic epilepsy of infancy
     Dosage: 250MG BY MOUTH TWICE DAILY
     Dates: start: 20241212
  2. DIACOMIT [Suspect]
     Active Substance: STIRIPENTOL
     Dosage: 250MG BY MOUTH TWICE DAILY
     Dates: start: 20241212
  3. DIACOMIT [Suspect]
     Active Substance: STIRIPENTOL
     Dosage: TAKE 137.5 MG BY MOUTH TWICE DAILY
     Dates: start: 20241212
  4. DIACOMIT [Suspect]
     Active Substance: STIRIPENTOL
  5. DIACOMIT [Suspect]
     Active Substance: STIRIPENTOL
  6. DIACOMIT [Suspect]
     Active Substance: STIRIPENTOL
  7. CLOBAZAM [Concomitant]
     Active Substance: CLOBAZAM
     Indication: Severe myoclonic epilepsy of infancy
  8. CLOBAZAM [Concomitant]
     Active Substance: CLOBAZAM
  9. IRON [Concomitant]
     Active Substance: IRON
     Indication: Product used for unknown indication
  10. IRON [Concomitant]
     Active Substance: IRON
  11. DIASTAT rectal gel [Concomitant]
     Indication: Product used for unknown indication
  12. DIASTAT rectal gel [Concomitant]
  13. VALPROIC ACID [Concomitant]
     Active Substance: VALPROIC ACID
     Indication: Product used for unknown indication
  14. VALPROIC ACID [Concomitant]
     Active Substance: VALPROIC ACID
  15. EPIDIOLEX [Concomitant]
     Active Substance: CANNABIDIOL
     Indication: Product used for unknown indication
  16. EPIDIOLEX [Concomitant]
     Active Substance: CANNABIDIOL

REACTIONS (11)
  - Somnolence [Unknown]
  - Dizziness [Unknown]
  - Product preparation issue [Unknown]
  - Off label use [Unknown]
  - Aspiration [Recovered/Resolved]
  - Cough [Recovered/Resolved]
  - Vomiting [Recovered/Resolved]
  - Labelled drug-food interaction issue [Unknown]
  - Product dose omission issue [Unknown]
  - Hyperbilirubinaemia [Recovering/Resolving]
  - Hypertransaminasaemia [Recovering/Resolving]

NARRATIVE: CASE EVENT DATE: 20241212
